FAERS Safety Report 24632158 (Version 1)
Quarter: 2024Q4

REPORT INFORMATION
  Report Type: Report from Study
  Country: US (occurrence: US)
  Receive Date: 20241118
  Receipt Date: 20241118
  Transmission Date: 20250115
  Serious: Yes (Other)
  Sender: JAZZ
  Company Number: US-JAZZ PHARMACEUTICALS-2024-US-021056

PATIENT
  Sex: Female

DRUGS (5)
  1. XYWAV [Suspect]
     Active Substance: CALCIUM OXYBATE\MAGNESIUM OXYBATE\POTASSIUM OXYBATE\SODIUM OXYBATE
     Indication: Narcolepsy
     Dosage: UNK
  2. XYWAV [Suspect]
     Active Substance: CALCIUM OXYBATE\MAGNESIUM OXYBATE\POTASSIUM OXYBATE\SODIUM OXYBATE
     Indication: Cataplexy
  3. XYWAV [Suspect]
     Active Substance: CALCIUM OXYBATE\MAGNESIUM OXYBATE\POTASSIUM OXYBATE\SODIUM OXYBATE
     Indication: Somnolence
  4. BETHANECHOL [Concomitant]
     Active Substance: BETHANECHOL
     Indication: Product used for unknown indication
     Dosage: 0000
     Dates: start: 20240530
  5. ALPRAZOLAM [Concomitant]
     Active Substance: ALPRAZOLAM
     Indication: Blood cholesterol abnormal
     Dosage: UNK
     Dates: start: 20241005

REACTIONS (1)
  - Knee operation [Unknown]
